FAERS Safety Report 10048156 (Version 2)
Quarter: 2014Q2

REPORT INFORMATION
  Report Type: Spontaneous
  Country: US (occurrence: US)
  Receive Date: 20140331
  Receipt Date: 20140421
  Transmission Date: 20141212
  Serious: Yes (Death, Other)
  Sender: FDA-Public Use
  Company Number: US-JNJFOC-20140316975

PATIENT
  Age: 47 Year
  Sex: Male
  Weight: 150.6 kg

DRUGS (7)
  1. INVOKANA [Suspect]
     Indication: TYPE 2 DIABETES MELLITUS
     Route: 048
     Dates: start: 20131219
  2. VICTOZA [Concomitant]
     Indication: TYPE 2 DIABETES MELLITUS
     Route: 058
  3. AMLODIPINE [Concomitant]
  4. COZAAR [Concomitant]
  5. LANTUS [Concomitant]
  6. METFORMIN [Concomitant]
  7. SIMVASTATIN [Concomitant]

REACTIONS (1)
  - Death [Fatal]
